FAERS Safety Report 19623551 (Version 3)
Quarter: 2023Q2

REPORT INFORMATION
  Report Type: Spontaneous
  Country: RU (occurrence: RU)
  Receive Date: 20210729
  Receipt Date: 20230622
  Transmission Date: 20230722
  Serious: Yes (Other)
  Sender: FDA-Public Use
  Company Number: RU-JNJFOC-20210747011

PATIENT
  Age: 60 Year
  Sex: Male
  Weight: 48.6 kg

DRUGS (6)
  1. SIRTURO [Suspect]
     Active Substance: BEDAQUILINE FUMARATE
     Indication: Product used for unknown indication
     Dosage: 400 UNITS NOT REPORTED
     Route: 048
     Dates: start: 20210519, end: 20220219
  2. LINEZOLID [Suspect]
     Active Substance: LINEZOLID
     Indication: Product used for unknown indication
     Dosage: 600 UNITS NOT REPORTED, INTERRUPTED FROM 21-JUL-2021 TO 29-JUL-2021
     Route: 048
     Dates: start: 20210519, end: 20210721
  3. LINEZOLID [Suspect]
     Active Substance: LINEZOLID
     Dosage: 300 UNITS NOT REPORTED FROM 29/JUL/2021 TO 19/FEB/2022
     Route: 048
     Dates: start: 20210729, end: 20220219
  4. LEVOFLOXACIN [Suspect]
     Active Substance: LEVOFLOXACIN
     Indication: Product used for unknown indication
     Dosage: 1000 UNITS NOT REPORTED
     Route: 048
     Dates: start: 20210519, end: 20220219
  5. CLOFAZIMINE [Suspect]
     Active Substance: CLOFAZIMINE
     Indication: Product used for unknown indication
     Dosage: 100 UNITS NOT REPORTED
     Route: 048
     Dates: start: 20210519, end: 20220219
  6. VITAMIN B6 [Concomitant]
     Active Substance: PYRIDOXINE HYDROCHLORIDE
     Indication: Prophylaxis
     Dosage: EVERY OTHER DAY
     Route: 048
     Dates: start: 20210519, end: 20220219

REACTIONS (1)
  - Anaemia [Recovered/Resolved]

NARRATIVE: CASE EVENT DATE: 20210719
